FAERS Safety Report 6403375-7 (Version None)
Quarter: 2009Q4

REPORT INFORMATION
  Report Type: 
  Country: None (occurrence: None)
  Receive Date: 20091016
  Receipt Date: 20091008
  Transmission Date: 20100525
  Serious: Yes (Hospitalization)
  Sender: FDA-Public Use
  Company Number: AU-ROCHE-661243

PATIENT
  Sex: Female
  Weight: 47 kg

DRUGS (1)
  1. TAMIFLU [Suspect]
     Indication: PROPHYLAXIS
     Dosage: FREQUENCY: 2 TIMES
     Route: 048
     Dates: start: 20090803, end: 20090808

REACTIONS (1)
  - COLITIS [None]
